FAERS Safety Report 5415411-5 (Version None)
Quarter: 2007Q3

REPORT INFORMATION
  Report Type: 
  Country: None (occurrence: None)
  Receive Date: 20070815
  Receipt Date: 20070806
  Transmission Date: 20080115
  Serious: Yes (Other)
  Sender: FDA-Public Use
  Company Number: CA-JNJFOC-20070401566

PATIENT
  Age: 67 Year
  Sex: Female

DRUGS (7)
  1. REMICADE [Suspect]
     Route: 042
  2. REMICADE [Suspect]
     Indication: RHEUMATOID ARTHRITIS
     Route: 042
  3. NOVO-DIFENAC SR [Concomitant]
     Route: 048
  4. METHOTREXATE [Concomitant]
     Route: 048
  5. FOLIC ACID [Concomitant]
     Route: 048
  6. DIOVAN HCT [Concomitant]
     Dosage: 160/35
     Route: 048
  7. CARBOCAL D [Concomitant]
     Route: 048

REACTIONS (2)
  - HYPERTENSION [None]
  - SYSTEMIC LUPUS ERYTHEMATOSUS RASH [None]
